FAERS Safety Report 5137271-2 (Version None)
Quarter: 2006Q4

REPORT INFORMATION
  Report Type: 
  Country: None (occurrence: None)
  Receive Date: 20061030
  Receipt Date: 20051003
  Transmission Date: 20070319
  Serious: No
  Sender: FDA-Public Use
  Company Number: US-GLAXOSMITHKLINE-A0576714A

PATIENT
  Age: 32 Year
  Sex: Female

DRUGS (2)
  1. ADVAIR HFA [Suspect]
     Indication: DRUG USE FOR UNKNOWN INDICATION
     Dosage: 1PUFF PER DAY
     Route: 055
     Dates: start: 20050922
  2. BIRTH CONTROL [Concomitant]
     Route: 062

REACTIONS (6)
  - BLOOD PRESSURE INCREASED [None]
  - DYSPNOEA [None]
  - HYPOAESTHESIA [None]
  - HYPOAESTHESIA FACIAL [None]
  - MOBILITY DECREASED [None]
  - TENSION [None]
